FAERS Safety Report 5469116-5 (Version None)
Quarter: 2007Q3

REPORT INFORMATION
  Report Type: 
  Country: None (occurrence: None)
  Receive Date: 20070927
  Receipt Date: 20070919
  Transmission Date: 20080115
  Serious: Yes (Hospitalization)
  Sender: FDA-Public Use
  Company Number: PHBS2007NO15610

PATIENT
  Age: 68 Year
  Sex: Male

DRUGS (2)
  1. ZOMETA [Suspect]
     Dates: start: 20070525
  2. ZOMETA [Suspect]
     Dates: start: 20070622

REACTIONS (6)
  - BLOOD PRESSURE DECREASED [None]
  - LEUKOPENIA [None]
  - MALAISE [None]
  - PRURITUS [None]
  - RASH [None]
  - THROMBOCYTOPENIA [None]
